FAERS Safety Report 7023470-1 (Version None)
Quarter: 2010Q3

REPORT INFORMATION
  Report Type: 
  Country: None (occurrence: None)
  Receive Date: 20100929
  Receipt Date: 20100915
  Transmission Date: 20110219
  Serious: Yes (Hospitalization)
  Sender: FDA-Public Use
  Company Number: 017289

PATIENT
  Sex: Female
  Weight: 77.1115 kg

DRUGS (26)
  1. ROTIGOTINE [Suspect]
     Indication: PARKINSON'S DISEASE
     Dosage: 4 MG QD TOPICAL
     Route: 061
     Dates: start: 20081218
  2. HYDROCODONE [Concomitant]
  3. PROTONIX [Concomitant]
  4. ALLEGRA [Concomitant]
  5. VESICARE [Concomitant]
  6. ATIVAN [Concomitant]
  7. METFORMIN HCL [Concomitant]
  8. GLIPIZIDE [Concomitant]
  9. SUDAFED 12 HOUR [Concomitant]
  10. COENZYME Q10 [Concomitant]
  11. SINEMET [Concomitant]
  12. SINEMET CR [Concomitant]
  13. STALEVO 100 [Concomitant]
  14. TRAZODONE HCL [Concomitant]
  15. MELOXICAM [Concomitant]
  16. ADVIL [Concomitant]
  17. FOSAMAX [Concomitant]
  18. ASPIRIN [Concomitant]
  19. UNKNOWN [Concomitant]
  20. TYLENOL [Concomitant]
  21. APOKYN [Concomitant]
  22. MIDODRINE HYDROCHLORIDE [Concomitant]
  23. PRILOSEC [Concomitant]
  24. SIMVASTATIN [Concomitant]
  25. CALCIUM [Concomitant]
  26. REQUIP [Concomitant]

REACTIONS (6)
  - AMNESIA [None]
  - BLOOD GLUCOSE INCREASED [None]
  - FACIAL BONES FRACTURE [None]
  - FALL [None]
  - LOSS OF CONSCIOUSNESS [None]
  - PAIN [None]
